FAERS Safety Report 7716169-7 (Version None)
Quarter: 2011Q3

REPORT INFORMATION
  Report Type: 
  Country: None (occurrence: None)
  Receive Date: 20110829
  Receipt Date: 20110817
  Transmission Date: 20111222
  Serious: Yes (Hospitalization, Other)
  Sender: FDA-Public Use
  Company Number: FR-ELI_LILLY_AND_COMPANY-FR201104002794

PATIENT
  Sex: Female
  Weight: 84 kg

DRUGS (6)
  1. ZYPREXA [Suspect]
     Indication: BIPOLAR DISORDER
     Dosage: UNK UNK, QD
     Route: 048
     Dates: start: 20100901, end: 20100919
  2. ZYPREXA [Suspect]
     Dosage: 1 DF, QD
     Route: 048
     Dates: start: 20100920, end: 20101101
  3. ZYPREXA [Suspect]
     Dosage: UNK UNK, QD
     Route: 048
     Dates: start: 20101101, end: 20101201
  4. FLUANXOL [Concomitant]
     Indication: PSYCHOTIC DISORDER
     Dosage: 20 MG, MONTHLY (1/M)
     Route: 030
     Dates: start: 20000901, end: 20101201
  5. ZYPREXA [Suspect]
     Dosage: UNK UNK, QD
     Route: 048
     Dates: start: 20101201, end: 20101222
  6. ACETAMINOPHEN [Concomitant]
     Indication: PYREXIA
     Dosage: 4 G, QD
     Route: 048
     Dates: start: 20101217, end: 20101220

REACTIONS (2)
  - DRUG RASH WITH EOSINOPHILIA AND SYSTEMIC SYMPTOMS [None]
  - SUICIDE ATTEMPT [None]
